FAERS Safety Report 9135707 (Version 1)
Quarter: 2013Q1

REPORT INFORMATION
  Report Type: Report from Study
  Country: FR (occurrence: FR)
  Receive Date: 20130304
  Receipt Date: 20130304
  Transmission Date: 20140127
  Serious: Yes (Death, Other)
  Sender: FDA-Public Use
  Company Number: FR-GENZYME-THYM-1003681

PATIENT
  Age: 51 Year
  Sex: Male

DRUGS (6)
  1. THYMOGLOBULINE [Suspect]
     Indication: BONE MARROW CONDITIONING REGIMEN
     Dosage: UNK
     Route: 065
     Dates: start: 20111122, end: 20111125
  2. EVOLTRA [Suspect]
     Indication: BONE MARROW CONDITIONING REGIMEN
     Dosage: UNK
     Route: 065
     Dates: start: 20111122, end: 20111125
  3. BUSILVEX [Suspect]
     Indication: BONE MARROW CONDITIONING REGIMEN
     Dosage: UNK
     Route: 065
     Dates: start: 20111122, end: 20111125
  4. PREDNISONE [Suspect]
     Indication: PRODUCT USED FOR UNKNOWN INDICATION
     Dosage: UNK
     Route: 065
  5. CYCLOSPORINE [Suspect]
     Indication: PRODUCT USED FOR UNKNOWN INDICATION
     Dosage: UNK
     Route: 065
  6. SIROLIMUS [Suspect]
     Indication: PRODUCT USED FOR UNKNOWN INDICATION
     Dosage: UNK
     Route: 065

REACTIONS (13)
  - Neurological decompensation [Fatal]
  - General physical health deterioration [Fatal]
  - Febrile bone marrow aplasia [Fatal]
  - Epilepsy [Recovered/Resolved]
  - Diabetes mellitus [Fatal]
  - Central nervous system haemorrhage [Unknown]
  - Graft versus host disease in skin [Recovered/Resolved with Sequelae]
  - Platelet count decreased [Unknown]
  - Staphylococcal infection [Recovered/Resolved]
  - Device related infection [Recovered/Resolved]
  - Adenovirus infection [Recovered/Resolved]
  - Pneumonia escherichia [Recovered/Resolved]
  - Mycobacterium avium complex infection [Fatal]
